FAERS Safety Report 14584075 (Version 1)
Quarter: 2018Q1

REPORT INFORMATION
  Report Type: Report from Study
  Country: JP (occurrence: JP)
  Receive Date: 20180228
  Receipt Date: 20180228
  Transmission Date: 20180509
  Serious: Yes (Other)
  Sender: FDA-Public Use
  Company Number: JP-TEVA-758872ISR

PATIENT
  Age: 72 Year
  Sex: Female

DRUGS (2)
  1. PREDNISOLONE. [Suspect]
     Active Substance: PREDNISOLONE
     Indication: MYASTHENIA GRAVIS
     Dosage: FOR 5 YEARS
     Route: 065
  2. RISEDRONIC ACID [Suspect]
     Active Substance: RISEDRONIC ACID
     Indication: OSTEOPOROSIS
     Route: 048

REACTIONS (3)
  - Pain in extremity [Unknown]
  - Atypical femur fracture [Unknown]
  - Fall [Unknown]
